FAERS Safety Report 6607678-2 (Version None)
Quarter: 2010Q1

REPORT INFORMATION
  Report Type: 
  Country: None (occurrence: None)
  Receive Date: 20100301
  Receipt Date: 20100217
  Transmission Date: 20100710
  Serious: Yes (Other)
  Sender: FDA-Public Use
  Company Number: GB-ELI_LILLY_AND_COMPANY-GB201002004884

PATIENT
  Age: 41 Year
  Sex: Male

DRUGS (6)
  1. OLANZAPINE [Suspect]
     Dosage: 500 MG, DAILY (1/D)
  2. ZAPONEX [Concomitant]
     Dosage: 300 MG, 2/D
     Route: 048
     Dates: start: 20091012
  3. SULPIRIDE [Concomitant]
     Dosage: 200 MG, 2/D
  4. VALPROATE SODIUM [Concomitant]
     Dosage: 1000 MG, 2/D
  5. SIMVASTATIN [Concomitant]
     Dosage: 20 MG, UNK
  6. PROCYCLIDINE HYDROCHLORIDE 2MG TAB [Concomitant]

REACTIONS (4)
  - ABNORMAL BEHAVIOUR [None]
  - OVERDOSE [None]
  - PALPITATIONS [None]
  - RESTLESSNESS [None]
